FAERS Safety Report 8515436-7 (Version None)
Quarter: 2012Q3

REPORT INFORMATION
  Report Type: 
  Country: None (occurrence: None)
  Receive Date: 20120705
  Receipt Date: 20120702
  Transmission Date: 20120928
  Serious: Yes (Hospitalization)
  Sender: FDA-Public Use
  Company Number: SP05547

PATIENT
  Age: 67 Year
  Sex: Female

DRUGS (4)
  1. ATORVASTATIN [Concomitant]
  2. VISICOL [Suspect]
     Indication: BOWEL PREPARATION
     Dosage: (50 DOSAGE FORMS),ORAL
     Route: 048
     Dates: start: 20120130, end: 20120131
  3. IRBESARTAN [Concomitant]
  4. LANSOPRAZOLE [Concomitant]

REACTIONS (10)
  - FEELING ABNORMAL [None]
  - BLOOD PRESSURE INADEQUATELY CONTROLLED [None]
  - OLIGURIA [None]
  - MALAISE [None]
  - DEHYDRATION [None]
  - EATING DISORDER [None]
  - TUBULOINTERSTITIAL NEPHRITIS [None]
  - NAUSEA [None]
  - BLOOD PRESSURE DECREASED [None]
  - VOMITING [None]
